FAERS Safety Report 22209639 (Version 1)
Quarter: 2023Q2

REPORT INFORMATION
  Report Type: Spontaneous
  Country: US (occurrence: US)
  Receive Date: 20230414
  Receipt Date: 20230414
  Transmission Date: 20230721
  Serious: No
  Sender: FDA-Public Use
  Company Number: US-Apnar-000126

PATIENT
  Age: 70 Year
  Sex: Male

DRUGS (7)
  1. TERAZOSIN HYDROCHLORIDE [Suspect]
     Active Substance: TERAZOSIN HYDROCHLORIDE
     Indication: Product used for unknown indication
  2. NIRMATRELVIR\RITONAVIR [Suspect]
     Active Substance: NIRMATRELVIR\RITONAVIR
     Indication: COVID-19
     Dosage: 300MG NIRMATRELVIR (TWO 150MG TABLETS), 100MG RITONAVIR TABLET TOGETHER TWICE DAILY FOR 5 DAYS
     Route: 048
  3. PROPRANOLOL [Concomitant]
     Active Substance: PROPRANOLOL HYDROCHLORIDE
  4. OMEPRAZOLE [Concomitant]
     Active Substance: OMEPRAZOLE
  5. FINASTERIDE [Concomitant]
     Active Substance: FINASTERIDE
  6. PRAVASTATIN [Concomitant]
     Active Substance: PRAVASTATIN
  7. DIAZEPAM [Concomitant]
     Active Substance: DIAZEPAM

REACTIONS (1)
  - Pyrexia [Recovered/Resolved]
